FAERS Safety Report 15677132 (Version 2)
Quarter: 2018Q4

REPORT INFORMATION
  Report Type: Spontaneous
  Country: US (occurrence: US)
  Receive Date: 20181130
  Receipt Date: 20181207
  Transmission Date: 20190205
  Serious: Yes (Other)
  Sender: FDA-Public Use
  Company Number: US-PFIZER INC-2018488284

PATIENT
  Age: 57 Year
  Sex: Female
  Weight: 48.99 kg

DRUGS (3)
  1. IBRANCE [Suspect]
     Active Substance: PALBOCICLIB
     Indication: BREAST CANCER STAGE III
     Dosage: 125 MG, CYCLIC (3 WEEKS ON/1 WEEK OFF)
     Route: 048
     Dates: start: 20180810, end: 20180902
  2. IBRANCE [Suspect]
     Active Substance: PALBOCICLIB
     Dosage: 75 MG, CYCLIC, (3 WEEKS ON AND 1 WEEK OFF)
     Route: 048
     Dates: start: 20180923, end: 20181014
  3. IBRANCE [Suspect]
     Active Substance: PALBOCICLIB
     Dosage: 100 MG, CYCLIC (3 WEEKS ON/1 WEEK OFF)
     Route: 048
     Dates: start: 20181022

REACTIONS (2)
  - Neutrophil count decreased [Recovered/Resolved]
  - Fatigue [Recovering/Resolving]

NARRATIVE: CASE EVENT DATE: 201809
